FAERS Safety Report 12825472 (Version 1)
Quarter: 2016Q4

REPORT INFORMATION
  Report Type: Spontaneous
  Country: US (occurrence: US)
  Receive Date: 20161007
  Receipt Date: 20161007
  Transmission Date: 20170207
  Serious: Yes (Other)
  Sender: FDA-Public Use
  Company Number: None

PATIENT
  Age: 25 Year
  Sex: Female
  Weight: 54.48 kg

DRUGS (5)
  1. OLANZAPINE 5MG QHS [Suspect]
     Active Substance: OLANZAPINE
     Indication: AFFECTIVE DISORDER
     Dosage: 5 MG QHS ORAL
     Route: 048
     Dates: start: 20130206, end: 20130306
  2. OLANZAPINE 5MG QHS [Suspect]
     Active Substance: OLANZAPINE
     Indication: AUTISM
     Dosage: 5 MG QHS ORAL
     Route: 048
     Dates: start: 20130206, end: 20130306
  3. MELATONIN [Concomitant]
     Active Substance: MELATONIN
  4. TRAZODONE [Concomitant]
     Active Substance: TRAZODONE HYDROCHLORIDE
  5. TRILEPTAL [Concomitant]
     Active Substance: OXCARBAZEPINE

REACTIONS (3)
  - Eye movement disorder [None]
  - Dyskinesia [None]
  - Product substitution issue [None]

NARRATIVE: CASE EVENT DATE: 20130603
